FAERS Safety Report 7114264-7 (Version None)
Quarter: 2010Q4

REPORT INFORMATION
  Report Type: 
  Country: None (occurrence: None)
  Receive Date: 20101119
  Receipt Date: 20101112
  Transmission Date: 20110411
  Serious: Yes (Other)
  Sender: FDA-Public Use
  Company Number: PHHY2010FR77697

PATIENT
  Sex: Male

DRUGS (3)
  1. LAMISIL [Suspect]
     Indication: ONYCHOMYCOSIS
     Dosage: ONE TABLET DAILY
     Route: 048
     Dates: start: 20100920
  2. CRESTOR [Suspect]
     Dosage: TWO TABLETS PER WEEK
     Route: 048
  3. CRESTOR [Suspect]
     Dosage: THREE TABLETS PER WEEK
     Route: 048
     Dates: start: 20100901

REACTIONS (5)
  - ALANINE AMINOTRANSFERASE INCREASED [None]
  - ALCOHOL POISONING [None]
  - ASPARTATE AMINOTRANSFERASE INCREASED [None]
  - GAMMA-GLUTAMYLTRANSFERASE INCREASED [None]
  - TRANSAMINASES INCREASED [None]
